FAERS Safety Report 15795627 (Version 1)
Quarter: 2019Q1

REPORT INFORMATION
  Report Type: Spontaneous
  Country: US (occurrence: US)
  Receive Date: 20190107
  Receipt Date: 20190107
  Transmission Date: 20190417
  Serious: No
  Sender: FDA-Public Use
  Company Number: US-MYLANLABS-2018M1093987

PATIENT
  Age: 15 Year
  Sex: Female
  Weight: 77.55 kg

DRUGS (1)
  1. RISPERIDONE. [Suspect]
     Active Substance: RISPERIDONE
     Indication: PRODUCT USED FOR UNKNOWN INDICATION
     Dosage: UNK

REACTIONS (4)
  - Blood testosterone increased [Unknown]
  - Blood cholesterol increased [Unknown]
  - Amenorrhoea [Unknown]
  - Blood insulin increased [Unknown]
